FAERS Safety Report 24650991 (Version 2)
Quarter: 2024Q4

REPORT INFORMATION
  Report Type: Report from Study
  Country: CA (occurrence: CA)
  Receive Date: 20241122
  Receipt Date: 20241217
  Transmission Date: 20250114
  Serious: Yes (Hospitalization, Other)
  Sender: JOHNSON AND JOHNSON
  Company Number: CA-JNJFOC-20240838695

PATIENT
  Age: 29 Year
  Sex: Male
  Weight: 77 kg

DRUGS (9)
  1. STELARA [Suspect]
     Active Substance: USTEKINUMAB
     Indication: Crohn^s disease
     Route: 058
     Dates: start: 20190205
  2. STELARA [Suspect]
     Active Substance: USTEKINUMAB
     Indication: Colitis ulcerative
     Route: 058
     Dates: start: 20190205
  3. STELARA [Suspect]
     Active Substance: USTEKINUMAB
     Route: 058
     Dates: start: 20190205
  4. ADDERALL [Concomitant]
     Active Substance: AMPHETAMINE ASPARTATE\AMPHETAMINE SULFATE\DEXTROAMPHETAMINE SACCHARATE\DEXTROAMPHETAMINE SULFATE
  5. VALIUM [Concomitant]
     Active Substance: DIAZEPAM
  6. VALIUM [Concomitant]
     Active Substance: DIAZEPAM
  7. VALIUM [Concomitant]
     Active Substance: DIAZEPAM
  8. VALIUM [Concomitant]
     Active Substance: DIAZEPAM
  9. VALIUM [Concomitant]
     Active Substance: DIAZEPAM

REACTIONS (13)
  - Thrombosis [Not Recovered/Not Resolved]
  - Physical assault [Unknown]
  - Gastrointestinal perforation [Not Recovered/Not Resolved]
  - Hospitalisation [Not Recovered/Not Resolved]
  - Spinal fracture [Not Recovered/Not Resolved]
  - Skin erosion [Recovering/Resolving]
  - Gait disturbance [Recovering/Resolving]
  - Anal incontinence [Not Recovered/Not Resolved]
  - Genital injury [Recovered/Resolved]
  - Infection [Recovered/Resolved]
  - Skin reaction [Unknown]
  - Dry skin [Unknown]
  - Abdominal distension [Not Recovered/Not Resolved]

NARRATIVE: CASE EVENT DATE: 20241019
